FAERS Safety Report 12134317 (Version 2)
Quarter: 2016Q1

REPORT INFORMATION
  Report Type: Report from Study
  Country: US (occurrence: US)
  Receive Date: 20160301
  Receipt Date: 20160308
  Transmission Date: 20160526
  Serious: Yes (Other)
  Sender: FDA-Public Use
  Company Number: US-GILEAD-2016-0200127

PATIENT
  Age: 30 Year
  Sex: Male

DRUGS (2)
  1. ATIVAN [Concomitant]
     Active Substance: LORAZEPAM
  2. LEDIPASVIR/SOFOSBUVIR [Suspect]
     Active Substance: LEDIPASVIR\SOFOSBUVIR
     Indication: HEPATITIS C
     Dosage: 1 DF, QD
     Route: 048
     Dates: start: 20160217

REACTIONS (12)
  - Headache [Unknown]
  - Photophobia [Unknown]
  - Insomnia [Unknown]
  - Hot flush [Unknown]
  - Suicidal ideation [Unknown]
  - Energy increased [Unknown]
  - Diarrhoea [Unknown]
  - Restlessness [Unknown]
  - Crying [Unknown]
  - Syncope [Unknown]
  - Emotional disorder [Unknown]
  - Decreased appetite [Unknown]

NARRATIVE: CASE EVENT DATE: 20160217
